FAERS Safety Report 4749175-5 (Version None)
Quarter: 2005Q3

REPORT INFORMATION
  Report Type: 
  Country: None (occurrence: None)
  Receive Date: 20050812
  Receipt Date: 20050513
  Transmission Date: 20060218
  Serious: Yes (Other)
  Sender: FDA-Public Use
  Company Number: 399620

PATIENT
  Age: 53 Year
  Sex: Female
  Weight: 54.4 kg

DRUGS (2)
  1. PEGASYS [Suspect]
     Indication: HEPATITIS C
     Dosage: 1 DOSE FORM 1 PER WEEK SUBCUTANEOUS
     Route: 058
     Dates: start: 20050211
  2. COPEGUS [Suspect]
     Indication: HEPATITIS C
     Dosage: 5 DOSE FORM DAILY ORAL
     Route: 048
     Dates: start: 20050211

REACTIONS (16)
  - ANOREXIA [None]
  - ARTHRALGIA [None]
  - BRONCHITIS [None]
  - COUGH [None]
  - DECREASED APPETITE [None]
  - DYSPNOEA [None]
  - FATIGUE [None]
  - INJECTION SITE ERYTHEMA [None]
  - INJECTION SITE PRURITUS [None]
  - MYALGIA [None]
  - NAUSEA [None]
  - PNEUMONIA [None]
  - PRURITUS [None]
  - PYREXIA [None]
  - VOMITING [None]
  - WHEEZING [None]
